FAERS Safety Report 25231733 (Version 1)
Quarter: 2025Q2

REPORT INFORMATION
  Report Type: Spontaneous
  Country: US (occurrence: US)
  Receive Date: 20250423
  Receipt Date: 20250423
  Transmission Date: 20250717
  Serious: No
  Sender: PFIZER
  Company Number: US-PFIZER INC-202500085482

PATIENT
  Age: 82 Year
  Sex: Female

DRUGS (1)
  1. IBRANCE [Suspect]
     Active Substance: PALBOCICLIB
     Dosage: TAKE ONE 125MG TABLET BY MOUTH DAILY FOR 21 DAYS, 7 DAYS OFF
     Route: 048

REACTIONS (2)
  - Fatigue [Unknown]
  - Decreased appetite [Unknown]
